FAERS Safety Report 7527301-2 (Version None)
Quarter: 2011Q2

REPORT INFORMATION
  Report Type: 
  Country: None (occurrence: None)
  Receive Date: 20110509
  Receipt Date: 20100618
  Transmission Date: 20111010
  Serious: Yes (Hospitalization)
  Sender: FDA-Public Use
  Company Number: 2010BH016446

PATIENT
  Age: 39 Year
  Sex: Male
  Weight: 88.5 kg

DRUGS (9)
  1. ABT-263 [Suspect]
     Indication: CHRONIC LYMPHOCYTIC LEUKAEMIA REFRACTORY
     Dosage: 11 MG; EVERY DAY; PO
     Route: 048
     Dates: start: 20100512, end: 20100514
  2. RITUXIMAB [Suspect]
     Indication: CHRONIC LYMPHOCYTIC LEUKAEMIA REFRACTORY
     Dates: start: 20100510, end: 20100510
  3. CYTOXAN [Suspect]
     Indication: CHRONIC LYMPHOCYTIC LEUKAEMIA REFRACTORY
     Dates: start: 20100511, end: 20100513
  4. FLUDARABINE PHOSPHATE [Suspect]
     Indication: CHRONIC LYMPHOCYTIC LEUKAEMIA REFRACTORY
     Dates: start: 20100511, end: 20100513
  5. HYDROCHLORIDE BACTRIM [Concomitant]
  6. ONDANSETRON [Concomitant]
  7. HYDROCORTISONE SODIUM PHOSPHATE [Concomitant]
  8. ALLOPURINOL [Concomitant]
  9. VALACYCLOVIR [Concomitant]

REACTIONS (1)
  - FEBRILE NEUTROPENIA [None]
